FAERS Safety Report 17762603 (Version 2)
Quarter: 2020Q4

REPORT INFORMATION
  Report Type: Spontaneous
  Country: US (occurrence: US)
  Receive Date: 20200508
  Receipt Date: 20201109
  Transmission Date: 20210113
  Serious: Yes (Death, Other)
  Sender: FDA-Public Use
  Company Number: US-NAPPMUNDI-USA-2020-0152705

PATIENT
  Age: 21 Year
  Sex: Female

DRUGS (2)
  1. OXYCONTIN [Suspect]
     Active Substance: OXYCODONE HYDROCHLORIDE
     Indication: SYSTEMIC LUPUS ERYTHEMATOSUS
  2. OXYCONTIN [Suspect]
     Active Substance: OXYCODONE HYDROCHLORIDE
     Indication: PAIN
     Dosage: 40 MG, UNK
     Route: 048
     Dates: start: 2006, end: 20080328

REACTIONS (6)
  - Coma [Unknown]
  - Pneumonia [Unknown]
  - Death [Fatal]
  - Septic shock [Unknown]
  - Toe amputation [Unknown]
  - Finger amputation [Unknown]

NARRATIVE: CASE EVENT DATE: 20080313
